FAERS Safety Report 5886441-4 (Version None)
Quarter: 2008Q3

REPORT INFORMATION
  Report Type: 
  Country: None (occurrence: None)
  Receive Date: 20080917
  Receipt Date: 20080912
  Transmission Date: 20090109
  Serious: Yes (Other)
  Sender: FDA-Public Use
  Company Number: AU-AVENTIS-200818703GDDC

PATIENT
  Age: 54 Year
  Sex: Male

DRUGS (11)
  1. LANTUS [Suspect]
     Indication: TYPE 2 DIABETES MELLITUS
     Route: 058
     Dates: start: 20080601
  2. FRUSEMIDE [Suspect]
  3. AUTOPEN INSULIN INJECTION PEN [Suspect]
  4. AMIODARONE HCL [Suspect]
  5. ALLOPURINOL [Concomitant]
  6. DILATREND [Concomitant]
  7. PRAVACHOL [Concomitant]
  8. COVERSYL                           /00790701/ [Concomitant]
  9. WARFARIN SODIUM [Concomitant]
  10. DIGOXIN [Concomitant]
  11. DIABEX [Concomitant]

REACTIONS (1)
  - HYPOGLYCAEMIA [None]
